FAERS Safety Report 23585395 (Version 1)
Quarter: 2024Q1

REPORT INFORMATION
  Report Type: Spontaneous
  Country: DE (occurrence: DE)
  Receive Date: 20240301
  Receipt Date: 20240301
  Transmission Date: 20240410
  Serious: Yes (Congenital Anomaly, Other)
  Sender: FDA-Public Use
  Company Number: None

PATIENT
  Age: 1 Day
  Sex: Male
  Weight: 3 kg

DRUGS (7)
  1. METFORMIN [Suspect]
     Active Substance: METFORMIN HYDROCHLORIDE
     Indication: Product used for unknown indication
     Dosage: MOTHER DOSE: 2000 [MG/DAY] 2 SEPARATED DOSES, DATE 16-SEP-2022 TO 27-JUN-2023 FOR 284 DAYS
     Route: 064
  2. PROGESTERONE [Suspect]
     Active Substance: PROGESTERONE
     Indication: Product used for unknown indication
     Dosage: MOTHER DOSE: 800 [MG/DAY] 2 SEPARATED DOSES
     Route: 064
  3. ESTRADIOL [Suspect]
     Active Substance: ESTRADIOL
     Indication: Product used for unknown indication
     Dosage: MOTHER DOSE: 6 [MG/DAY] 3 SEPARATED DOSES
     Route: 064
  4. MISOPROSTOL [Concomitant]
     Active Substance: MISOPROSTOL
     Indication: Product used for unknown indication
     Dosage: UNKNOWN
     Route: 064
  5. ASPIRIN [Concomitant]
     Active Substance: ASPIRIN
     Indication: Product used for unknown indication
     Dosage: MOTHER DOSE: 150 [MG/DAY]
     Route: 064
  6. ENOXAPARIN SODIUM [Concomitant]
     Active Substance: ENOXAPARIN SODIUM
     Indication: Product used for unknown indication
     Dosage: MOTHER DOSE: 40 [MG/DAY]/ ELEVATED THROMBOSIS MARKER
     Route: 064
  7. METHYLDOPA [Concomitant]
     Active Substance: METHYLDOPA
     Indication: Product used for unknown indication
     Dosage: MOTHER DOSE: FOR THE LAST 3 WEEKS, 3X DAILY, DOSAGE UNCLEAR
     Route: 064

REACTIONS (2)
  - Ventricular septal defect [Unknown]
  - Foetal exposure during pregnancy [Unknown]

NARRATIVE: CASE EVENT DATE: 20230601
